FAERS Safety Report 22303775 (Version 1)
Quarter: 2023Q2

REPORT INFORMATION
  Report Type: Spontaneous
  Country: IR (occurrence: IR)
  Receive Date: 20230510
  Receipt Date: 20230510
  Transmission Date: 20230722
  Serious: Yes (Other)
  Sender: FDA-Public Use
  Company Number: IR-SUN PHARMACEUTICAL INDUSTRIES LTD-2023RR-387856

PATIENT
  Age: 47 Year
  Sex: Male

DRUGS (2)
  1. CASPOFUNGIN [Suspect]
     Active Substance: CASPOFUNGIN
     Indication: Mucormycosis
     Dosage: 50 MILLIGRAM, DAILY
     Route: 042
  2. AMPHOTERICIN B [Suspect]
     Active Substance: AMPHOTERICIN B
     Dosage: 300 MILLIGRAM, DAILY
     Route: 065

REACTIONS (5)
  - Therapeutic product effect incomplete [Unknown]
  - Aneurysm [Recovered/Resolved]
  - Ischaemia [Recovered/Resolved]
  - Generalised tonic-clonic seizure [Recovered/Resolved]
  - Subarachnoid haemorrhage [Recovered/Resolved]
